FAERS Safety Report 7122685-1 (Version None)
Quarter: 2010Q4

REPORT INFORMATION
  Report Type: 
  Country: None (occurrence: None)
  Receive Date: 20101124
  Receipt Date: 20101111
  Transmission Date: 20110411
  Serious: Yes (Hospitalization, Other)
  Sender: FDA-Public Use
  Company Number: CH-PFIZER INC-2010145425

PATIENT
  Age: 57 Year
  Sex: Female

DRUGS (5)
  1. EFFEXOR XR [Suspect]
     Dosage: 150 MG, UNK
     Route: 048
     Dates: start: 20101101, end: 20101101
  2. LORAZEPAM [Suspect]
     Dosage: 1 MG, UNK
     Route: 048
     Dates: start: 20101101, end: 20101101
  3. IMOVANE [Suspect]
     Dosage: 7.5 MG, UNK
     Dates: start: 20101101, end: 20101101
  4. IMOVANE [Suspect]
     Dosage: UNK
  5. ENALAPRIL [Concomitant]
     Dosage: 5 MG, 1X/DAY
     Route: 048

REACTIONS (6)
  - ASTHENIA [None]
  - COGWHEEL RIGIDITY [None]
  - CONFUSIONAL STATE [None]
  - HYPERTENSION [None]
  - INTENTIONAL OVERDOSE [None]
  - PSYCHOMOTOR SKILLS IMPAIRED [None]
